FAERS Safety Report 6589062-3 (Version None)
Quarter: 2010Q1

REPORT INFORMATION
  Report Type: 
  Country: None (occurrence: None)
  Receive Date: 20100202
  Receipt Date: 20090923
  Transmission Date: 20100710
  Serious: No
  Sender: FDA-Public Use
  Company Number: 2010-00635

PATIENT
  Age: 52 Year
  Sex: Male
  Weight: 68.0396 kg

DRUGS (2)
  1. ZICAM NASAL PRODUCTS [Suspect]
     Dosage: 2X'S DAILY-ABOUT A WEEK, FALL OR WINTER 2008
  2. ALLEGRA D 24 HOUR [Concomitant]

REACTIONS (4)
  - ANOSMIA [None]
  - HAEMORRHAGE [None]
  - NASAL DISCOMFORT [None]
  - SCAB [None]
